FAERS Safety Report 5609880-5 (Version None)
Quarter: 2008Q1

REPORT INFORMATION
  Report Type: 
  Country: None (occurrence: None)
  Receive Date: 20080131
  Receipt Date: 20080118
  Transmission Date: 20080703
  Serious: Yes (Hospitalization, Disabling, Other)
  Sender: FDA-Public Use
  Company Number: US-ELI_LILLY_AND_COMPANY-US200708006106

PATIENT
  Sex: Male
  Weight: 87.075 kg

DRUGS (18)
  1. CYMBALTA [Suspect]
     Indication: DIABETIC NEUROPATHY
     Dosage: 30 MG, DAILY (1/D)
     Route: 048
     Dates: start: 20051001, end: 20060101
  2. CYMBALTA [Suspect]
     Dosage: 60 MG, DAILY (1/D)
     Route: 048
     Dates: start: 20060101, end: 20070703
  3. VICODIN ES [Concomitant]
     Dosage: 1 D/F, AS NEEDED
     Dates: start: 19970101
  4. DURAGESIC-100 [Concomitant]
     Indication: BACK PAIN
     Dosage: 25 D/F, UNK
     Route: 062
     Dates: start: 19970101, end: 20060201
  5. DURAGESIC-100 [Concomitant]
     Dosage: 50 D/F, UNK
     Route: 062
     Dates: start: 20060201
  6. DURAGESIC-100 [Concomitant]
     Dosage: 75 D/F, UNK
     Route: 023
     Dates: start: 20070101
  7. VYTORIN [Concomitant]
     Dosage: 1 D/F, EACH EVENING
     Route: 048
     Dates: end: 20060101
  8. DUONEB [Concomitant]
     Dosage: 1 D/F, 4/D
  9. COZAAR [Concomitant]
     Dosage: 100 MG, DAILY (1/D)
     Route: 048
     Dates: end: 20060101
  10. COZAAR [Concomitant]
     Dosage: 50 MG, DAILY (1/D)
     Route: 048
     Dates: start: 20060101
  11. BENICAR [Concomitant]
     Dosage: 1 D/F, DAILY (1/D)
     Route: 048
  12. METFORMIN HCL [Concomitant]
     Dosage: 50 MG, 2/D
     Route: 048
  13. NEXIUM [Concomitant]
     Dosage: 40 MG, EACH MORNING
     Route: 048
  14. CRESTOR [Concomitant]
     Dosage: 5 MG, DAILY (1/D)
     Route: 048
     Dates: start: 20060101, end: 20060101
  15. CRESTOR [Concomitant]
     Dosage: 10 MG, DAILY (1/D)
     Route: 048
  16. LUNESTA [Concomitant]
     Dosage: 2 MG, UNK
     Dates: start: 20060101, end: 20070101
  17. LUNESTA [Concomitant]
     Dosage: 3 MG, UNK
  18. ASPIRIN [Concomitant]
     Dosage: 81 MG, DAILY (1/D)

REACTIONS (46)
  - ACTIVITIES OF DAILY LIVING IMPAIRED [None]
  - AGITATION [None]
  - AMNESIA [None]
  - ANGER [None]
  - ANXIETY [None]
  - ARTHRALGIA [None]
  - ASTHENIA [None]
  - BELLIGERENCE [None]
  - BLOOD GLUCOSE INCREASED [None]
  - CONFUSIONAL STATE [None]
  - DEAFNESS [None]
  - DELIRIUM [None]
  - DEPRESSED LEVEL OF CONSCIOUSNESS [None]
  - DEPRESSION [None]
  - DISTURBANCE IN ATTENTION [None]
  - DIZZINESS POSTURAL [None]
  - DRUG INEFFECTIVE [None]
  - DRUG WITHDRAWAL SYNDROME [None]
  - EAR PAIN [None]
  - FATIGUE [None]
  - FOOD AVERSION [None]
  - HALLUCINATION [None]
  - HEADACHE [None]
  - HOSTILITY [None]
  - INGROWING NAIL [None]
  - INSOMNIA [None]
  - LETHARGY [None]
  - LOSS OF CONSCIOUSNESS [None]
  - MANIA [None]
  - MENTAL DISORDER [None]
  - MENTAL STATUS CHANGES [None]
  - NERVOUSNESS [None]
  - ORTHOSTATIC HYPOTENSION [None]
  - PARANOIA [None]
  - ROAD TRAFFIC ACCIDENT [None]
  - SINUSITIS [None]
  - SOMNOLENCE [None]
  - STRESS [None]
  - SUICIDAL IDEATION [None]
  - SYNCOPE [None]
  - TENDERNESS [None]
  - TENOSYNOVITIS STENOSANS [None]
  - TINNITUS [None]
  - TREMOR [None]
  - UNRESPONSIVE TO STIMULI [None]
  - WEIGHT DECREASED [None]
